FAERS Safety Report 6473773-4 (Version None)
Quarter: 2009Q4

REPORT INFORMATION
  Report Type: 
  Country: None (occurrence: None)
  Receive Date: 20091204
  Receipt Date: 20091127
  Transmission Date: 20100525
  Serious: Yes (Hospitalization)
  Sender: FDA-Public Use
  Company Number: DE-PFIZER INC-2009303208

PATIENT
  Age: 55 Year
  Sex: Female
  Weight: 75 kg

DRUGS (9)
  1. DIFLUCAN [Interacting]
     Indication: PROPHYLAXIS
     Dosage: 200 MG, 1X/DAY
     Route: 048
     Dates: start: 20090925, end: 20091002
  2. HOLOXAN [Suspect]
     Indication: GASTRIC SARCOMA
     Dosage: 3000 MG, 1X/DAY
     Route: 042
     Dates: start: 20090915, end: 20090919
  3. TAZOBAC [Suspect]
     Indication: PNEUMONIA
     Dosage: 4.5 G, 3X/DAY
     Route: 042
     Dates: start: 20090925, end: 20091004
  4. DEXAMETHASONE [Interacting]
     Indication: GASTRIC SARCOMA
     Dosage: 8 MG, 1X/DAY
     Route: 042
     Dates: start: 20090915, end: 20090919
  5. PANTOZOL [Interacting]
     Indication: PROPHYLAXIS AGAINST GASTROINTESTINAL ULCER
     Dosage: 40 MG, 2X/DAY
     Route: 048
     Dates: start: 20090601
  6. CIPRALEX [Concomitant]
     Indication: ANXIETY DISORDER
     Dosage: 5 MG, 1X/DAY
     Route: 048
     Dates: start: 20090918
  7. GRANISETRON [Concomitant]
     Indication: PROPHYLAXIS OF NAUSEA AND VOMITING
     Dosage: 3 MG, 1X/DAY
     Route: 042
     Dates: start: 20090915, end: 20090919
  8. MESNA [Concomitant]
     Indication: PROPHYLAXIS
     Dosage: 3000 MG, 1X/DAY
     Route: 042
     Dates: start: 20090915, end: 20090919
  9. METOPROLOL [Concomitant]
     Indication: HYPERTENSION
     Dosage: 95MG/0/47.5MG
     Route: 048
     Dates: start: 20000101

REACTIONS (2)
  - CLOSTRIDIUM DIFFICILE COLITIS [None]
  - DRUG INTERACTION [None]
